FAERS Safety Report 10973341 (Version 1)
Quarter: 2015Q1

REPORT INFORMATION
  Report Type: Spontaneous
  Country: US (occurrence: None)
  Receive Date: 20150331
  Receipt Date: 20150331
  Transmission Date: 20150721
  Serious: Yes (Other)
  Sender: FDA-Public Use
  Company Number: None

PATIENT
  Age: 47 Year
  Sex: Male
  Weight: 102.06 kg

DRUGS (2)
  1. HYDROCODONE/ACETAMINOPHEN [Suspect]
     Active Substance: ACETAMINOPHEN\HYDROCODONE
     Indication: NEPHROLITHIASIS
     Dosage: 1 EVERY 5-6 HRS AS NEEDED TAKEN BY MOUTH
     Route: 048
  2. HYDROCODONE/ACETAMINOPHEN [Suspect]
     Active Substance: ACETAMINOPHEN\HYDROCODONE
     Indication: DISEASE RECURRENCE
     Dosage: 1 EVERY 5-6 HRS AS NEEDED TAKEN BY MOUTH
     Route: 048

REACTIONS (2)
  - Product substitution issue [None]
  - Drug ineffective [None]

NARRATIVE: CASE EVENT DATE: 20150317
